FAERS Safety Report 4743310-0 (Version None)
Quarter: 2005Q3

REPORT INFORMATION
  Report Type: 
  Country: None (occurrence: None)
  Receive Date: 20050809
  Receipt Date: 20050726
  Transmission Date: 20060218
  Serious: Yes (Hospitalization)
  Sender: FDA-Public Use
  Company Number: 2005PV000518

PATIENT
  Age: 42 Year
  Sex: Female
  Weight: 112.0385 kg

DRUGS (11)
  1. BYETTA [Suspect]
     Indication: DIABETES MELLITUS
     Dosage: 5 MCG; BID; SC
     Route: 058
     Dates: start: 20050721, end: 20050725
  2. ATENOLOL [Concomitant]
  3. LIPITOR [Concomitant]
  4. LISINOPRIL [Concomitant]
  5. METFORMIN [Concomitant]
  6. ACTOS [Concomitant]
  7. SINGULAIR [Concomitant]
  8. ASPIRIN [Concomitant]
  9. PLAVIX [Concomitant]
  10. ALBUTEROL [Concomitant]
  11. INSULIN [Concomitant]

REACTIONS (2)
  - PANCREATIC PHLEGMON [None]
  - PANCREATITIS ACUTE [None]
